FAERS Safety Report 9440697 (Version 4)
Quarter: 2013Q4

REPORT INFORMATION
  Report Type: Spontaneous
  Country: US (occurrence: None)
  Receive Date: 20130801
  Receipt Date: 20131104
  Transmission Date: 20140711
  Serious: Yes (Hospitalization, Other)
  Sender: FDA-Public Use
  Company Number: ADR-2013-01263

PATIENT
  Age: 13 Year
  Sex: Male

DRUGS (1)
  1. BACLOFEN 4,000MCG/ML [Suspect]
     Indication: MUSCLE SPASTICITY
     Dosage: 960 MCG/DAY

REACTIONS (11)
  - Posturing [None]
  - Unevaluable event [None]
  - Vomiting [None]
  - Urinary tract infection [None]
  - Neurological symptom [None]
  - Slow response to stimuli [None]
  - Pupillary disorder [None]
  - Respiratory depression [None]
  - Convulsion [None]
  - Depression [None]
  - Therapeutic response decreased [None]
